FAERS Safety Report 16146664 (Version 1)
Quarter: 2019Q2

REPORT INFORMATION
  Report Type: Spontaneous
  Country: IT (occurrence: IT)
  Receive Date: 20190402
  Receipt Date: 20190402
  Transmission Date: 20190711
  Serious: Yes (Hospitalization)
  Sender: FDA-Public Use
  Company Number: IT-TEVA-2019-IT-1031747

PATIENT
  Age: 90 Year
  Sex: Male

DRUGS (5)
  1. ALLOPURINOL. [Suspect]
     Active Substance: ALLOPURINOL
     Dosage: 300 MILLIGRAM DAILY;
     Route: 048
  2. SEEBRI BREEZHALER 44 MICROGRAMS INHALATION POWDER, HARD CAPSULES [Concomitant]
     Dosage: HARD CAPSULES
     Route: 055
  3. BISOPROLOL FUMARATE. [Concomitant]
     Active Substance: BISOPROLOL FUMARATE
     Dosage: 1.25 MILLIGRAM DAILY;
     Route: 048
  4. ENALAPRIL/IDROCLOROTIAZIDE [Concomitant]
     Dosage: 1 DOSAGE FORMS DAILY;
     Route: 048
  5. COUMADIN [Interacting]
     Active Substance: WARFARIN SODIUM
     Route: 048

REACTIONS (2)
  - Subdural haematoma [Recovered/Resolved]
  - Drug interaction [Unknown]

NARRATIVE: CASE EVENT DATE: 20180924
